FAERS Safety Report 6243043-8 (Version None)
Quarter: 2009Q2

REPORT INFORMATION
  Report Type: 
  Country: None (occurrence: None)
  Receive Date: 20090617
  Receipt Date: 20080502
  Transmission Date: 20091009
  Serious: No
  Sender: FDA-Public Use
  Company Number: 274926

PATIENT
  Age: 61 Year
  Sex: Female

DRUGS (4)
  1. LEVEMIR [Suspect]
     Indication: INSULIN-REQUIRING TYPE 2 DIABETES MELLITUS
     Dosage: 50 LU, QD, SUBCUTANEOUS
     Route: 058
     Dates: start: 20080301
  2. LISINOPRIL [Concomitant]
  3. ATENOLOL [Concomitant]
  4. HYDROCHLOROTHIAZIDE [Concomitant]

REACTIONS (3)
  - BLOOD GLUCOSE INCREASED [None]
  - MALAISE [None]
  - SINUSITIS [None]
